FAERS Safety Report 7458885-0 (Version None)
Quarter: 2011Q2

REPORT INFORMATION
  Report Type: 
  Country: None (occurrence: None)
  Receive Date: 20110504
  Receipt Date: 20110502
  Transmission Date: 20111010
  Serious: Yes (Death)
  Sender: FDA-Public Use
  Company Number: PHHY2010DE91538

PATIENT
  Sex: Female
  Weight: 50 kg

DRUGS (2)
  1. SANDOSTATIN LAR [Suspect]
     Indication: CARCINOID SYNDROME
     Dosage: 30 MG, EVERY 26 DAYS
     Route: 030
     Dates: start: 20070501, end: 20110314
  2. LEVOTHYROXINE SODIUM [Concomitant]
     Route: 048
     Dates: start: 20070509

REACTIONS (4)
  - FLUID RETENTION [None]
  - BLISTER [None]
  - DEATH [None]
  - INFLAMMATION [None]
